FAERS Safety Report 13167421 (Version 1)
Quarter: 2017Q1

REPORT INFORMATION
  Report Type: Spontaneous
  Country: US (occurrence: US)
  Receive Date: 20170130
  Receipt Date: 20170130
  Transmission Date: 20170428
  Serious: Yes (Disabling)
  Sender: FDA-Public Use
  Company Number: None

PATIENT
  Age: 58 Year
  Sex: Female
  Weight: 95.85 kg

DRUGS (4)
  1. MULTIVITAMIN [Concomitant]
     Active Substance: VITAMINS
  2. AMLODIPINE 10 MG TAB ASCEND LABORATORIES [Suspect]
     Active Substance: AMLODIPINE BESYLATE
     Indication: ESSENTIAL HYPERTENSION
     Dosage: ?          QUANTITY:30 TABLET(S);?
     Route: 048
     Dates: start: 20170105, end: 20170128
  3. PHILLIPS COLON HEALTH [Concomitant]
  4. CALCIUM CITRATE+VITAMIN D3 [Concomitant]

REACTIONS (3)
  - Splinter haemorrhages [None]
  - Eye haemorrhage [None]
  - Blood pressure increased [None]

NARRATIVE: CASE EVENT DATE: 20170124
